FAERS Safety Report 7517501-X (Version None)
Quarter: 2011Q2

REPORT INFORMATION
  Report Type: 
  Country: None (occurrence: None)
  Receive Date: 20110601
  Receipt Date: 20110519
  Transmission Date: 20111010
  Serious: Yes (Other)
  Sender: FDA-Public Use
  Company Number: PHHY2011JP40626

PATIENT
  Age: 2 Year
  Sex: Male

DRUGS (3)
  1. PREDNISOLONE [Concomitant]
  2. CYCLOSPORINE [Suspect]
     Indication: FOCAL SEGMENTAL GLOMERULOSCLEROSIS
     Route: 065
  3. METHYLPREDNISOLONE [Concomitant]
     Indication: FOCAL SEGMENTAL GLOMERULOSCLEROSIS

REACTIONS (7)
  - NEPHROTIC SYNDROME [None]
  - SEPSIS [None]
  - POSTERIOR REVERSIBLE ENCEPHALOPATHY SYNDROME [None]
  - FOCAL SEGMENTAL GLOMERULOSCLEROSIS [None]
  - RENAL FAILURE [None]
  - EYELID OEDEMA [None]
  - WEIGHT INCREASED [None]
